FAERS Safety Report 6698713-4 (Version None)
Quarter: 2010Q2

REPORT INFORMATION
  Report Type: 
  Country: None (occurrence: None)
  Receive Date: 20100427
  Receipt Date: 20091113
  Transmission Date: 20101027
  Serious: No
  Sender: FDA-Public Use
  Company Number: US-ASTRAZENECA-2009SE19321

PATIENT
  Age: 53 Year
  Sex: Female
  Weight: 59 kg

DRUGS (3)
  1. ZOMIG [Suspect]
     Indication: MIGRAINE
     Dosage: 5-10 MG/DAY
     Route: 045
  2. AMITRIPTYLINE [Concomitant]
  3. WELLBUTRIN [Concomitant]

REACTIONS (2)
  - DERMATITIS [None]
  - PERIPHERAL COLDNESS [None]
